FAERS Safety Report 10646057 (Version 7)
Quarter: 2015Q4

REPORT INFORMATION
  Report Type: Report from Study
  Country: BR (occurrence: BR)
  Receive Date: 20141211
  Receipt Date: 20151009
  Transmission Date: 20160304
  Serious: Yes (Hospitalization, Other)
  Sender: FDA-Public Use
  Company Number: BR-SA-2014SA168543

PATIENT
  Age: 62 Year
  Sex: Female
  Weight: 52 kg

DRUGS (8)
  1. LANTUS SOLOSTAR [Suspect]
     Active Substance: INSULIN GLARGINE
     Indication: TYPE 2 DIABETES MELLITUS
     Route: 065
  2. LANTUS SOLOSTAR [Suspect]
     Active Substance: INSULIN GLARGINE
     Indication: TYPE 2 DIABETES MELLITUS
     Route: 065
  3. TRADJENTA [Concomitant]
     Active Substance: LINAGLIPTIN
     Indication: BLOOD GLUCOSE DECREASED
     Route: 048
     Dates: start: 2012
  4. LANTUS SOLOSTAR [Suspect]
     Active Substance: INSULIN GLARGINE
     Indication: TYPE 2 DIABETES MELLITUS
     Route: 065
  5. SYNTHROID [Suspect]
     Active Substance: LEVOTHYROXINE SODIUM
     Route: 065
  6. SOLOSTAR [Concomitant]
     Active Substance: DEVICE
  7. LANTUS SOLOSTAR [Suspect]
     Active Substance: INSULIN GLARGINE
     Indication: TYPE 2 DIABETES MELLITUS
     Dosage: DOSE: 40 IU^S DAILY IN THE MORNING
     Route: 065
  8. LANTUS [Suspect]
     Active Substance: INSULIN GLARGINE
     Indication: TYPE 2 DIABETES MELLITUS
     Dosage: 40 IU DAILY IN MORNING.?TREATMENT START DATE: APPROX. 1 YEAR AND 6 MONTHS AGO.
     Route: 065
     Dates: start: 2013

REACTIONS (24)
  - Gluten sensitivity [Recovered/Resolved]
  - Diabetic neuropathy [Unknown]
  - Hyperglycaemia [Recovering/Resolving]
  - Hyperhidrosis [Recovering/Resolving]
  - Glycosylated haemoglobin increased [Unknown]
  - Diabetic ketoacidosis [Recovered/Resolved]
  - Dry skin [Unknown]
  - Pain in extremity [Unknown]
  - Insulin resistance [Unknown]
  - Hypoglycaemia [Recovering/Resolving]
  - Hunger [Not Recovered/Not Resolved]
  - Immunodeficiency [Recovering/Resolving]
  - Urinary tract infection [Recovered/Resolved]
  - Unevaluable event [Unknown]
  - Asthenia [Recovered/Resolved]
  - Abdominal pain [Recovered/Resolved]
  - Abdominal distension [Recovered/Resolved]
  - Anaemia [Recovered/Resolved]
  - Blood thyroid stimulating hormone increased [Recovering/Resolving]
  - Dry skin [Recovering/Resolving]
  - Diabetic coma [Recovered/Resolved]
  - Renal pain [Recovered/Resolved]
  - Alopecia [Unknown]
  - Muscle atrophy [Unknown]

NARRATIVE: CASE EVENT DATE: 2014
